FAERS Safety Report 5493402-6 (Version None)
Quarter: 2007Q4

REPORT INFORMATION
  Report Type: 
  Country: None (occurrence: None)
  Receive Date: 20071023
  Receipt Date: 20071011
  Transmission Date: 20080405
  Serious: Yes (Hospitalization)
  Sender: FDA-Public Use
  Company Number: MX-ELI_LILLY_AND_COMPANY-MX200710003098

PATIENT
  Age: 10 Year
  Sex: Male

DRUGS (3)
  1. PROZAC [Suspect]
     Indication: CONDUCT DISORDER
     Dosage: 20 MG, DAILY (1/D)
     Route: 048
     Dates: start: 20070501
  2. ATEMPERATOR [Concomitant]
     Indication: EPILEPSY
     Dosage: 8 ML, EVERY 8 HRS
     Route: 048
  3. OMEPRAZOLE [Concomitant]
     Indication: REFLUX OESOPHAGITIS
     Dosage: 20 MG, DAILY (1/D)
     Route: 048

REACTIONS (5)
  - HYPERTONIA [None]
  - NAUSEA [None]
  - PYREXIA [None]
  - TRISMUS [None]
  - VOMITING [None]
